FAERS Safety Report 4821702-9 (Version None)
Quarter: 2005Q4

REPORT INFORMATION
  Report Type: 
  Country: None (occurrence: None)
  Receive Date: 20051104
  Receipt Date: 20051104
  Transmission Date: 20060501
  Serious: Yes (Hospitalization)
  Sender: FDA-Public Use
  Company Number: None

PATIENT
  Age: 54 Year
  Sex: Male

DRUGS (2)
  1. HEPARIN [Suspect]
     Dosage: 5000 UNITS SQ
     Route: 058
  2. ZYVOX [Suspect]
     Dosage: 600MG BID PO
     Route: 048

REACTIONS (1)
  - PLATELET COUNT DECREASED [None]
